FAERS Safety Report 4724717-4 (Version None)
Quarter: 2005Q3

REPORT INFORMATION
  Report Type: 
  Country: None (occurrence: None)
  Receive Date: 20050720
  Receipt Date: 20050720
  Transmission Date: 20060218
  Serious: Yes (Life-Threatening, Hospitalization)
  Sender: FDA-Public Use
  Company Number: None

PATIENT
  Age: 23 Year
  Sex: Male
  Weight: 63.5036 kg

DRUGS (3)
  1. HALDOL [Suspect]
     Indication: PSYCHOTIC DISORDER
     Dosage: 5 MG    IM Q6H PRN
     Dates: start: 20041024, end: 20041026
  2. ZOLOFT [Suspect]
     Indication: OBSESSIVE-COMPULSIVE DISORDER
     Dosage: 50 MG    QD
     Dates: start: 20041024, end: 20041026
  3. RISPERDAL [Concomitant]

REACTIONS (14)
  - AGITATION [None]
  - DROOLING [None]
  - DRUG TOXICITY [None]
  - DYSKINESIA [None]
  - GENERAL PHYSICAL HEALTH DETERIORATION [None]
  - GRIMACING [None]
  - HAND DEFORMITY [None]
  - MANIA [None]
  - MASKED FACIES [None]
  - MENTAL IMPAIRMENT [None]
  - MENTAL STATUS CHANGES [None]
  - MUSCULOSKELETAL STIFFNESS [None]
  - ORAL INTAKE REDUCED [None]
  - TONGUE BITING [None]
